FAERS Safety Report 8935415 (Version 1)
Quarter: 2013Q1

REPORT INFORMATION
  Report Type: Spontaneous
  Country: US (occurrence: None)
  Receive Date: 20121128
  Receipt Date: 20121128
  Transmission Date: 20140127
  Serious: Yes (Hospitalization)
  Sender: FDA-Public Use
  Company Number: None

PATIENT
  Age: 63 Year
  Sex: Male

DRUGS (20)
  1. ALEMTUZUMAB [Suspect]
     Indication: MULTIPLE SCLEROSIS
     Dosage: D1 10MG QD I/V (D41)?D2 20MG QD I/V (D41)
     Route: 042
     Dates: start: 20090727, end: 20090729
  2. SOLUMEDRAL [Suspect]
     Dosage: D3 20MG QD I/V (D41)?1GRM XQD X D41 X 3 DAYS
     Route: 042
     Dates: start: 20090727, end: 20090729
  3. ACYCLOVIR [Concomitant]
  4. ALTACE [Concomitant]
  5. ASA [Concomitant]
  6. ATENOLOL [Concomitant]
  7. CRESTOR [Concomitant]
  8. DERMAVITE [Concomitant]
  9. EFFEXORXR [Concomitant]
  10. HYDROXYZINE HCL [Concomitant]
  11. IBUPROFEN [Concomitant]
  12. LOCET PLUS [Concomitant]
  13. MECLIZINE [Concomitant]
  14. MEPERIDINE [Concomitant]
  15. NAPROXEN [Concomitant]
  16. PROMETHAZINE [Concomitant]
  17. PROVIGIL [Concomitant]
  18. RANITIDINE [Concomitant]
  19. TEGRETOL [Concomitant]
  20. COMPATH [Concomitant]

REACTIONS (2)
  - Pyrexia [None]
  - Pneumonia [None]
